FAERS Safety Report 7811367-6 (Version None)
Quarter: 2011Q4

REPORT INFORMATION
  Report Type: 
  Country: None (occurrence: None)
  Receive Date: 20111013
  Receipt Date: 20111006
  Transmission Date: 20120403
  Serious: Yes (Other)
  Sender: FDA-Public Use
  Company Number: US-PFIZER INC-2011239181

PATIENT
  Sex: Male

DRUGS (10)
  1. PRILOSEC [Concomitant]
     Dosage: UNK, DAILY
     Route: 048
  2. LYRICA [Suspect]
     Indication: FIBROMYALGIA
     Dosage: 75 MG, 2X/DAY
     Route: 048
     Dates: start: 20110628
  3. FOLIC ACID [Concomitant]
     Dosage: 1 MG, DAILY
  4. VITAMIN B1 TAB [Concomitant]
     Dosage: 100 MG, DAILY
  5. LIPITOR [Suspect]
     Indication: BLOOD CHOLESTEROL ABNORMAL
     Dosage: 10 MG, DAILY
     Dates: start: 20110517
  6. LYRICA [Suspect]
     Dosage: 150 MG, 2X/DAY
     Route: 048
     Dates: start: 20110927
  7. DIOVAN [Concomitant]
     Indication: HYPERTENSION
     Dosage: 320 MG, DAILY
     Route: 048
  8. CENTRUM SILVER [Concomitant]
     Dosage: UNK, DAILY
  9. ACETYLSALICYLIC ACID [Concomitant]
     Dosage: 81 MG
  10. IBUPROFEN (ADVIL) [Concomitant]
     Dosage: 200 MG TWO TABLETS

REACTIONS (2)
  - OEDEMA PERIPHERAL [None]
  - WEIGHT INCREASED [None]
